FAERS Safety Report 4738431-2 (Version None)
Quarter: 2005Q3

REPORT INFORMATION
  Report Type: 
  Country: None (occurrence: None)
  Receive Date: 20050803
  Receipt Date: 20050722
  Transmission Date: 20060218
  Serious: Yes (Death, Hospitalization)
  Sender: FDA-Public Use
  Company Number: 2005000810

PATIENT
  Age: 71 Year
  Sex: Male

DRUGS (4)
  1. ERLOTINIB HCL [Suspect]
     Indication: NON-SMALL CELL LUNG CANCER
     Dosage: 150 MG (QD) ORAL
     Route: 048
     Dates: start: 20050322, end: 20050419
  2. ISOSORBIDE DINITRATE [Concomitant]
  3. CAPTOPRIL [Concomitant]
  4. FUROSEMIDE [Concomitant]

REACTIONS (6)
  - BLOOD CREATININE INCREASED [None]
  - DEHYDRATION [None]
  - DIARRHOEA [None]
  - HYPOVOLAEMIC SHOCK [None]
  - MULTI-ORGAN FAILURE [None]
  - RASH [None]
